FAERS Safety Report 5103130-4 (Version None)
Quarter: 2006Q3

REPORT INFORMATION
  Report Type: 
  Country: None (occurrence: None)
  Receive Date: 20060908
  Receipt Date: 20060829
  Transmission Date: 20061208
  Serious: No
  Sender: FDA-Public Use
  Company Number: 2006104573

PATIENT
  Age: 40 Year
  Sex: Female
  Weight: 70 kg

DRUGS (2)
  1. ZOLOFT [Suspect]
     Indication: DRUG USE FOR UNKNOWN INDICATION
     Dosage: 50 MG (1 IN 1 D), ORAL
     Route: 048
     Dates: start: 20060501
  2. SEDOXIL (MEXAZOLAM) [Concomitant]

REACTIONS (2)
  - BLOOD ALCOHOL INCREASED [None]
  - ROAD TRAFFIC ACCIDENT [None]
